FAERS Safety Report 6563601-0 (Version None)
Quarter: 2010Q1

REPORT INFORMATION
  Report Type: 
  Country: None (occurrence: None)
  Receive Date: 20100130
  Receipt Date: 20091221
  Transmission Date: 20100710
  Serious: Yes (Other)
  Sender: FDA-Public Use
  Company Number: US-ABBOTT-09P-163-0615699-00

PATIENT
  Sex: Male

DRUGS (4)
  1. HUMIRA [Suspect]
     Indication: RHEUMATOID ARTHRITIS
     Dates: start: 20090101
  2. HUMIRA [Suspect]
     Indication: COLITIS ULCERATIVE
  3. INFLIXIMAB [Suspect]
     Indication: RHEUMATOID ARTHRITIS
     Route: 042
     Dates: start: 20060101, end: 20090101
  4. INFLIXIMAB [Suspect]
     Indication: COLITIS ULCERATIVE

REACTIONS (4)
  - COLITIS ULCERATIVE [None]
  - DRUG INEFFECTIVE [None]
  - HAEMORRHAGE [None]
  - RHEUMATOID ARTHRITIS [None]
